FAERS Safety Report 5318524-1 (Version None)
Quarter: 2007Q2

REPORT INFORMATION
  Report Type: 
  Country: None (occurrence: None)
  Receive Date: 20070507
  Receipt Date: 20070427
  Transmission Date: 20071010
  Serious: Yes (Hospitalization)
  Sender: FDA-Public Use
  Company Number: BE-ABBOTT-06P-013-0352072-00

PATIENT
  Sex: Female

DRUGS (8)
  1. HUMIRA [Suspect]
     Indication: RHEUMATOID ARTHRITIS
     Route: 058
     Dates: start: 20041109, end: 20070102
  2. PREDNISOLONE [Concomitant]
     Indication: RHEUMATOID ARTHRITIS
  3. ALLOPURINOL [Concomitant]
     Indication: RHEUMATOID ARTHRITIS
  4. OMEPRAZOLE [Concomitant]
     Indication: DRUG USE FOR UNKNOWN INDICATION
  5. RISEDRONATE SODIUM [Concomitant]
     Indication: RHEUMATOID ARTHRITIS
  6. LORAZEPAM [Concomitant]
     Indication: DRUG USE FOR UNKNOWN INDICATION
  7. CALCIUM CARBONATE [Concomitant]
     Indication: RHEUMATOID ARTHRITIS
  8. METHYLPREDNISOLONE 16MG TAB [Concomitant]
     Indication: RHEUMATOID ARTHRITIS

REACTIONS (18)
  - ARTERIOSCLEROSIS [None]
  - ATRIAL FIBRILLATION [None]
  - BRONCHIECTASIS [None]
  - BRONCHITIS [None]
  - CARDIAC FAILURE [None]
  - DYSPNOEA [None]
  - HEPATIC CONGESTION [None]
  - HYPERGLYCAEMIA [None]
  - HYPERTROPHIC CARDIOMYOPATHY [None]
  - IRON DEFICIENCY ANAEMIA [None]
  - LIVER FUNCTION TEST ABNORMAL [None]
  - LUNG INFILTRATION [None]
  - LUNG INJURY [None]
  - MUSCULOSKELETAL PAIN [None]
  - NECK PAIN [None]
  - PITTING OEDEMA [None]
  - RENAL IMPAIRMENT [None]
  - SPUTUM ABNORMAL [None]
